FAERS Safety Report 15250979 (Version 9)
Quarter: 2018Q4

REPORT INFORMATION
  Report Type: Report from Study
  Country: CO (occurrence: CO)
  Receive Date: 20180807
  Receipt Date: 20181026
  Transmission Date: 20190204
  Serious: Yes (Life-Threatening, Hospitalization)
  Sender: FDA-Public Use
  Company Number: PHHY2018CO064115

PATIENT
  Sex: Male
  Weight: 89 kg

DRUGS (7)
  1. REVOLADE [Suspect]
     Active Substance: ELTROMBOPAG
     Dosage: 100 MG, QD
     Route: 048
  2. LOSARTAN. [Suspect]
     Active Substance: LOSARTAN
     Indication: HYPERTENSION
     Dosage: 50 MG, TID
     Route: 048
     Dates: start: 2013
  3. METOPROLOL. [Suspect]
     Active Substance: METOPROLOL
     Indication: CARDIAC DISORDER
     Dosage: 50 MG, TID
     Route: 048
     Dates: start: 2013
  4. INSULIN [Concomitant]
     Active Substance: INSULIN NOS
     Indication: DIABETES MELLITUS
     Route: 065
  5. REVOLADE [Suspect]
     Active Substance: ELTROMBOPAG
     Indication: IMMUNE THROMBOCYTOPENIC PURPURA
     Dosage: 150 MG, QD (ONE DAY IN BETWEEN)
     Route: 048
     Dates: start: 20180515
  6. METFORMIN HYDROCHLORIDE. [Suspect]
     Active Substance: METFORMIN HYDROCHLORIDE
     Indication: DIABETES MELLITUS
     Dosage: 800 MG, QD
     Route: 048
     Dates: start: 2013
  7. AMLODIPINE [Concomitant]
     Active Substance: AMLODIPINE BESYLATE
     Indication: PRODUCT USED FOR UNKNOWN INDICATION
     Route: 065

REACTIONS (14)
  - Splenic haematoma [Recovering/Resolving]
  - Cough [Recovering/Resolving]
  - Pulmonary thrombosis [Unknown]
  - Lymphoma [Recovering/Resolving]
  - Umbilical hernia [Recovering/Resolving]
  - Concomitant disease aggravated [Recovering/Resolving]
  - Inappropriate schedule of product administration [Unknown]
  - Thrombosis [Not Recovered/Not Resolved]
  - Platelet count increased [Not Recovered/Not Resolved]
  - Platelet count decreased [Recovering/Resolving]
  - Mouth haemorrhage [Recovering/Resolving]
  - Muscle spasms [Recovered/Resolved]
  - Prescribed overdose [Unknown]
  - Haemoglobin decreased [Recovering/Resolving]
